FAERS Safety Report 12701684 (Version 1)
Quarter: 2016Q3

REPORT INFORMATION
  Report Type: Spontaneous
  Country: SE (occurrence: SE)
  Receive Date: 20160831
  Receipt Date: 20160831
  Transmission Date: 20161109
  Serious: Yes (Other)
  Sender: FDA-Public Use
  Company Number: SE-ASTRAZENECA-2016SE90974

PATIENT
  Age: 56 Year
  Sex: Female

DRUGS (7)
  1. VENTOLINE EVOHALER [Concomitant]
     Active Substance: ALBUTEROL SULFATE
     Dates: start: 201509
  2. D-VITAMIN SOM KOSTTILLSKOTT [Concomitant]
     Dates: start: 201301
  3. CRESTOR [Suspect]
     Active Substance: ROSUVASTATIN CALCIUM
     Indication: BLOOD CHOLESTEROL INCREASED
     Route: 048
     Dates: start: 20160617, end: 20160617
  4. ALVESCO [Concomitant]
     Active Substance: CICLESONIDE
     Dates: start: 201509
  5. HYDROCHLOROTHIAZIDE. [Concomitant]
     Active Substance: HYDROCHLOROTHIAZIDE
     Dates: start: 201302
  6. LOSARTAN TEVA [Concomitant]
     Active Substance: LOSARTAN
  7. SPIRONOLACTONE. [Concomitant]
     Active Substance: SPIRONOLACTONE
     Dates: start: 201301

REACTIONS (4)
  - Chest pain [Recovered/Resolved]
  - Oropharyngeal pain [Recovered/Resolved]
  - Fatigue [Recovered/Resolved]
  - Pharyngeal oedema [Recovered/Resolved]

NARRATIVE: CASE EVENT DATE: 20160617
